FAERS Safety Report 6480254-0 (Version None)
Quarter: 2009Q4

REPORT INFORMATION
  Report Type: 
  Country: None (occurrence: None)
  Receive Date: 20091202
  Receipt Date: 20091123
  Transmission Date: 20100525
  Serious: Yes (Other)
  Sender: FDA-Public Use
  Company Number: 2009US004181

PATIENT
  Age: 90 Year
  Sex: Female

DRUGS (4)
  1. VESICARE [Suspect]
     Indication: HYPERTONIC BLADDER
     Dosage: 5 MG, UID/QD, ORAL
     Route: 048
     Dates: end: 20090923
  2. DETROL [Suspect]
     Indication: HYPERTONIC BLADDER
     Dosage: 5 MG, UID/QD,
     Dates: start: 20090501, end: 20090501
  3. XALATAN [Concomitant]
  4. TYLENOL [Concomitant]

REACTIONS (4)
  - CONSTIPATION [None]
  - GAIT DISTURBANCE [None]
  - PHARYNGEAL OEDEMA [None]
  - SWOLLEN TONGUE [None]
